FAERS Safety Report 7511996-3 (Version None)
Quarter: 2011Q2

REPORT INFORMATION
  Report Type: 
  Country: None (occurrence: None)
  Receive Date: 20110531
  Receipt Date: 20110519
  Transmission Date: 20111010
  Serious: Yes (Other)
  Sender: FDA-Public Use
  Company Number: PHHY2011ES42881

PATIENT
  Age: 34 Year
  Sex: Female

DRUGS (2)
  1. TEGRETOL [Suspect]
     Dates: start: 20100101
  2. ROMILAR [Interacting]

REACTIONS (3)
  - EPILEPSY [None]
  - MEDICATION ERROR [None]
  - DRUG INTERACTION [None]
